FAERS Safety Report 17936582 (Version 3)
Quarter: 2020Q3

REPORT INFORMATION
  Report Type: Report from Study
  Country: DE (occurrence: DE)
  Receive Date: 20200624
  Receipt Date: 20200902
  Transmission Date: 20201103
  Serious: Yes (Other)
  Sender: FDA-Public Use
  Company Number: DE-VERTEX PHARMACEUTICALS-2020-013005

PATIENT
  Age: 38 Year
  Sex: Male
  Weight: 52 kg

DRUGS (1)
  1. ELEXACAFTOR/TEZACAFTOR/IVACAFTOR AND IVACAFTOR [Suspect]
     Active Substance: ELEXACAFTOR\IVACAFTOR\TEZACAFTOR
     Indication: CYSTIC FIBROSIS
     Dosage: 2 TABS(100 MG ELEXACAFTOR/ 50 MG TEZACAFTOR/ 75 MG IVACAFTOR) IN AM; 1 TAB(150MG IVACAFTOR) IN PM
     Route: 048
     Dates: start: 20200529

REACTIONS (1)
  - Epididymitis [Recovering/Resolving]

NARRATIVE: CASE EVENT DATE: 20200610
